FAERS Safety Report 7042086-4 (Version None)
Quarter: 2010Q3

REPORT INFORMATION
  Report Type: 
  Country: None (occurrence: None)
  Receive Date: 20100929
  Receipt Date: 20100817
  Transmission Date: 20110219
  Serious: No
  Sender: FDA-Public Use
  Company Number: US-WYE-H17002010

PATIENT
  Age: 37 Year
  Sex: Male

DRUGS (2)
  1. PRISTIQ [Suspect]
     Indication: PANIC ATTACK
     Dosage: 50 MG 1X PER 1 DAY, ORAL
     Route: 048
     Dates: start: 20100701
  2. ATIVAN [Suspect]
     Dates: end: 20100813

REACTIONS (5)
  - ABDOMINAL DISCOMFORT [None]
  - ANXIETY [None]
  - HEADACHE [None]
  - INSOMNIA [None]
  - TREMOR [None]
